FAERS Safety Report 23224852 (Version 1)
Quarter: 2023Q4

REPORT INFORMATION
  Report Type: Spontaneous
  Country: US (occurrence: US)
  Receive Date: 20231124
  Receipt Date: 20231124
  Transmission Date: 20240109
  Serious: No
  Sender: FDA-Public Use
  Company Number: US-002147023-NVSC2023US250306

PATIENT
  Sex: Male

DRUGS (1)
  1. VIJOICE [Suspect]
     Active Substance: ALPELISIB
     Indication: PIK3CA related overgrowth spectrum
     Route: 065

REACTIONS (4)
  - Hyperglycaemia [Unknown]
  - Acne [Unknown]
  - Alopecia [Unknown]
  - Nausea [Unknown]
